FAERS Safety Report 10979985 (Version 2)
Quarter: 2015Q2

REPORT INFORMATION
  Report Type: Spontaneous
  Country: US (occurrence: US)
  Receive Date: 20150402
  Receipt Date: 20150525
  Transmission Date: 20150821
  Serious: No
  Sender: FDA-Public Use
  Company Number: US-JNJFOC-20130612574

PATIENT
  Sex: Female
  Weight: 54.43 kg

DRUGS (9)
  1. IMODIUM MULTI-SYMPTOM RELIEF [Suspect]
     Active Substance: DIMETHICONE\LOPERAMIDE HYDROCHLORIDE
     Route: 048
  2. SIMVASTATIN. [Concomitant]
     Active Substance: SIMVASTATIN
     Indication: BLOOD CHOLESTEROL
     Route: 065
  3. ALENDRONATE [Concomitant]
     Active Substance: ALENDRONATE SODIUM
     Indication: BONE DENSITY ABNORMAL
     Route: 065
  4. ARNICA MONTANA. [Concomitant]
     Active Substance: ARNICA MONTANA
     Indication: CONTUSION
     Route: 065
  5. LISINOPRIL. [Concomitant]
     Active Substance: LISINOPRIL
     Indication: HYPERTENSION
     Route: 065
  6. HOMEOPATHIC MEDICINE NUX-VOMICA [Concomitant]
     Indication: DYSPEPSIA
     Route: 065
  7. IMODIUM MULTI-SYMPTOM RELIEF [Suspect]
     Active Substance: DIMETHICONE\LOPERAMIDE HYDROCHLORIDE
     Indication: DIARRHOEA
     Route: 048
  8. HOMEOPATHIC MEDICINE NUX-VOMICA [Concomitant]
     Indication: ABDOMINAL DISCOMFORT
     Route: 065
  9. ARNICA MONTANA. [Concomitant]
     Active Substance: ARNICA MONTANA
     Indication: MYALGIA
     Route: 065

REACTIONS (1)
  - Drug ineffective [Unknown]
